FAERS Safety Report 19122870 (Version 1)
Quarter: 2021Q2

REPORT INFORMATION
  Report Type: Spontaneous
  Country: US (occurrence: US)
  Receive Date: 20210412
  Receipt Date: 20210412
  Transmission Date: 20210717
  Serious: Yes (Hospitalization)
  Sender: FDA-Public Use
  Company Number: US-OXFORD PHARMACEUTICALS, LLC-2109200

PATIENT
  Age: 64 Year
  Sex: Female

DRUGS (9)
  1. TOPIRAMATE. [Interacting]
     Active Substance: TOPIRAMATE
  2. CLONAZEPAM. [Interacting]
     Active Substance: CLONAZEPAM
  3. ERENUMAB [Concomitant]
     Active Substance: ERENUMAB
  4. BENZTROPINE MESYLATE. [Suspect]
     Active Substance: BENZTROPINE MESYLATE
     Indication: PRODUCT USED FOR UNKNOWN INDICATION
  5. TRAZODONE HYDROCHLORIDE. [Interacting]
     Active Substance: TRAZODONE HYDROCHLORIDE
  6. LURASIDONE HYDROCHLORIDE. [Interacting]
     Active Substance: LURASIDONE HYDROCHLORIDE
  7. AMITRIPTYLINE HYDROCHLORIDE. [Interacting]
     Active Substance: AMITRIPTYLINE HYDROCHLORIDE
  8. CYCLOBENZAPRINE HYDROCHLORIDE. [Interacting]
     Active Substance: CYCLOBENZAPRINE HYDROCHLORIDE
  9. SITAGLIPTIN [Concomitant]
     Active Substance: SITAGLIPTIN

REACTIONS (2)
  - Hyperthermia [Recovered/Resolved with Sequelae]
  - Drug interaction [Recovered/Resolved with Sequelae]
